FAERS Safety Report 24805106 (Version 1)
Quarter: 2025Q1

REPORT INFORMATION
  Report Type: Spontaneous
  Country: US (occurrence: US)
  Receive Date: 20250103
  Receipt Date: 20250103
  Transmission Date: 20250409
  Serious: Yes (Hospitalization, Other)
  Sender: BRISTOL-MYERS SQUIBB COMPANY
  Company Number: US-BRISTOL-MYERS SQUIBB COMPANY-2025-000676

PATIENT
  Age: 62 Year
  Sex: Female

DRUGS (1)
  1. REVLIMID [Suspect]
     Active Substance: LENALIDOMIDE
     Indication: Plasma cell myeloma
     Dosage: QOD
     Route: 048

REACTIONS (6)
  - Product distribution issue [Unknown]
  - Inappropriate schedule of product administration [Unknown]
  - Viral infection [Recovering/Resolving]
  - Gastrointestinal disorder [Recovering/Resolving]
  - Immunodeficiency [Recovering/Resolving]
  - Blood potassium decreased [Recovering/Resolving]
